FAERS Safety Report 8850244 (Version 1)
Quarter: 2012Q4

REPORT INFORMATION
  Report Type: 
  Country: FR (occurrence: FR)
  Receive Date: 20121019
  Receipt Date: 20121019
  Transmission Date: 20130627
  Serious: Yes (Death, Hospitalization, Other)
  Sender: FDA-Public Use
  Company Number: FR-B.I. PHARMACEUTICALS,INC./RIDGEFIELD-2012-FF-01508FF

PATIENT
  Age: 81 Year
  Sex: Male
  Weight: 55 kg

DRUGS (3)
  1. PRADAXA [Suspect]
     Indication: ATRIAL FIBRILLATION
     Dosage: 220 mg
     Route: 048
     Dates: start: 20120418, end: 201208
  2. ANTIHYPERTENSIVE DRUG [Concomitant]
  3. ANTICHOLESTEROLEMIC DRUG [Concomitant]

REACTIONS (5)
  - Pneumonia aspiration [Fatal]
  - Acute respiratory failure [Fatal]
  - Ischaemic stroke [Recovered/Resolved with Sequelae]
  - Hemiplegia [Unknown]
  - Dysphagia [Recovered/Resolved]
